FAERS Safety Report 22258982 (Version 2)
Quarter: 2023Q2

REPORT INFORMATION
  Report Type: Spontaneous
  Country: CA (occurrence: CA)
  Receive Date: 20230427
  Receipt Date: 20230526
  Transmission Date: 20230722
  Serious: Yes (Death, Life-Threatening, Hospitalization, Other)
  Sender: FDA-Public Use
  Company Number: CA-002147023-NVSC2023CA095729

PATIENT
  Age: 71 Year
  Sex: Male

DRUGS (24)
  1. RITUXIMAB [Suspect]
     Active Substance: RITUXIMAB
     Indication: Immunosuppressant drug therapy
     Dosage: 1000 MG (TOTAL)
     Route: 042
  2. RITUXIMAB [Suspect]
     Active Substance: RITUXIMAB
     Indication: Immunoglobulin G4 related disease
  3. MYCOPHENOLATE MOFETIL [Suspect]
     Active Substance: MYCOPHENOLATE MOFETIL
     Indication: Immunosuppressant drug therapy
     Dosage: 1 G, BID
     Route: 048
  4. MYCOPHENOLATE MOFETIL [Suspect]
     Active Substance: MYCOPHENOLATE MOFETIL
     Indication: Immunoglobulin G4 related disease
  5. PREDNISONE [Suspect]
     Active Substance: PREDNISONE
     Indication: Immunosuppressant drug therapy
     Dosage: 50 MG, Q24H
     Route: 048
  6. PREDNISONE [Suspect]
     Active Substance: PREDNISONE
     Indication: Immunoglobulin G4 related disease
     Dosage: 50 MG, Q24H
     Route: 048
  7. PREDNISONE [Suspect]
     Active Substance: PREDNISONE
     Dosage: 45 MG, Q24H
     Route: 048
  8. PREDNISONE [Suspect]
     Active Substance: PREDNISONE
     Dosage: 20 MG, Q24H
     Route: 048
  9. PREDNISONE [Suspect]
     Active Substance: PREDNISONE
     Dosage: 40 MG, Q24H
     Route: 048
  10. PREDNISONE [Suspect]
     Active Substance: PREDNISONE
     Dosage: 30 MG, Q24H
     Route: 048
  11. PREDNISONE [Suspect]
     Active Substance: PREDNISONE
     Dosage: 40 MG
     Route: 048
  12. PREDNISONE [Suspect]
     Active Substance: PREDNISONE
     Dosage: 40 MG, QD
     Route: 048
  13. PREDNISONE [Suspect]
     Active Substance: PREDNISONE
     Dosage: 20 MG, QD
     Route: 048
  14. PREDNISONE [Suspect]
     Active Substance: PREDNISONE
     Dosage: 50 MG
     Route: 048
  15. PREDNISONE [Suspect]
     Active Substance: PREDNISONE
     Dosage: 50 MG, QD
     Route: 048
  16. PREDNISONE [Suspect]
     Active Substance: PREDNISONE
     Dosage: 30 MG
     Route: 048
  17. PREDNISONE [Suspect]
     Active Substance: PREDNISONE
     Dosage: 30 MG, QD
     Route: 048
  18. PREDNISONE [Suspect]
     Active Substance: PREDNISONE
     Dosage: 45 MG, QD
     Route: 048
  19. PREDNISONE [Suspect]
     Active Substance: PREDNISONE
     Dosage: 45 MG
     Route: 048
  20. PREDNISONE [Suspect]
     Active Substance: PREDNISONE
     Dosage: 20 MG
     Route: 048
  21. PREDNISONE [Suspect]
     Active Substance: PREDNISONE
     Dosage: 20 MG
     Route: 048
  22. PREDNISONE [Suspect]
     Active Substance: PREDNISONE
     Dosage: 50 MG, QD
     Route: 048
  23. MYCOPHENOLATE MOFETIL [Suspect]
     Active Substance: MYCOPHENOLATE MOFETIL
     Indication: Immunosuppressant drug therapy
     Dosage: 1 G, Q12H
     Route: 048
  24. MYCOPHENOLATE MOFETIL [Suspect]
     Active Substance: MYCOPHENOLATE MOFETIL
     Indication: Immunoglobulin G4 related disease
     Dosage: 1 G
     Route: 048

REACTIONS (6)
  - Disseminated strongyloidiasis [Fatal]
  - Pneumonia aspiration [Fatal]
  - Septic shock [Fatal]
  - Strongyloidiasis [Fatal]
  - Enterococcal bacteraemia [Fatal]
  - Escherichia infection [Fatal]
